FAERS Safety Report 9731912 (Version 1)
Quarter: 2013Q4

REPORT INFORMATION
  Report Type: Spontaneous
  Country: US (occurrence: None)
  Receive Date: 20131204
  Receipt Date: 20131204
  Transmission Date: 20140711
  Serious: No
  Sender: FDA-Public Use
  Company Number: None

PATIENT
  Age: 16 Year
  Sex: Male
  Weight: 77.11 kg

DRUGS (1)
  1. DRYSOL DAB-O-MATIC [Suspect]
     Indication: HYPERHIDROSIS
     Dosage: AT BEDTIME PUT ON SKIN THEN PUT WRAP ON
     Dates: start: 20131113, end: 20131114

REACTIONS (5)
  - Axillary pain [None]
  - Movement disorder [None]
  - Erythema [None]
  - Hyperaesthesia [None]
  - Activities of daily living impaired [None]
